FAERS Safety Report 8928328 (Version 1)
Quarter: 2012Q4

REPORT INFORMATION
  Report Type: Spontaneous
  Country: US (occurrence: None)
  Receive Date: 20121126
  Receipt Date: 20121126
  Transmission Date: 20130627
  Serious: Yes (Disabling)
  Sender: FDA-Public Use
  Company Number: None

PATIENT
  Age: 66 Year
  Sex: Female
  Weight: 53.98 kg

DRUGS (2)
  1. CRESTOR [Suspect]
     Indication: HIGH CHOLESTEROL
     Route: 048
     Dates: start: 20120904, end: 20121113
  2. CRESTOR [Suspect]
     Indication: HEART ATTACK
     Route: 048
     Dates: start: 20120904, end: 20121113

REACTIONS (3)
  - Myalgia [None]
  - Cognitive disorder [None]
  - Amnesia [None]
